FAERS Safety Report 17520028 (Version 1)
Quarter: 2020Q1

REPORT INFORMATION
  Report Type: Spontaneous
  Country: US (occurrence: US)
  Receive Date: 20200309
  Receipt Date: 20200309
  Transmission Date: 20200409
  Serious: Yes (Disabling)
  Sender: FDA-Public Use
  Company Number: US-NEXGEN PHARMA, INC.-2081432

PATIENT
  Age: 20 Year
  Sex: Male

DRUGS (1)
  1. POLYETHYLENE GLYCOL 3350. [Suspect]
     Active Substance: POLYETHYLENE GLYCOL 3350
     Indication: CONSTIPATION
     Route: 048

REACTIONS (4)
  - Nervous system disorder [None]
  - Neuropsychiatric symptoms [Unknown]
  - Off label use [Unknown]
  - Aggression [Recovering/Resolving]
